FAERS Safety Report 14294014 (Version 1)
Quarter: 2017Q4

REPORT INFORMATION
  Report Type: Spontaneous
  Country: GB (occurrence: GB)
  Receive Date: 20171217
  Receipt Date: 20171217
  Transmission Date: 20180321
  Serious: Yes (Hospitalization, Other)
  Sender: FDA-Public Use
  Company Number: GB-DEXPHARM-20171855

PATIENT
  Age: 74 Year

DRUGS (2)
  1. SODIUM LACTATE. [Suspect]
     Active Substance: SODIUM LACTATE
     Route: 042
     Dates: start: 20170914
  2. DICLOFENAC SODIUM. [Suspect]
     Active Substance: DICLOFENAC SODIUM
     Dosage: 75MG/3ML
     Route: 042
     Dates: start: 20170914

REACTIONS (1)
  - Blood pressure decreased [Unknown]

NARRATIVE: CASE EVENT DATE: 20170914
